FAERS Safety Report 8491072-6 (Version None)
Quarter: 2012Q3

REPORT INFORMATION
  Report Type: 
  Country: None (occurrence: None)
  Receive Date: 20120706
  Receipt Date: 20120628
  Transmission Date: 20120928
  Serious: Yes (Death, Other)
  Sender: FDA-Public Use
  Company Number: US-NAPPMUNDI-USA-2012-0084776

PATIENT
  Age: 19 Year
  Sex: Male

DRUGS (1)
  1. OXYCODONE HCL [Suspect]
     Indication: MIGRAINE

REACTIONS (2)
  - DRUG DEPENDENCE [None]
  - MYOCARDIAL INFARCTION [None]
